FAERS Safety Report 9055523 (Version 4)
Quarter: 2013Q1

REPORT INFORMATION
  Report Type: Spontaneous
  Country: JP (occurrence: JP)
  Receive Date: 20130206
  Receipt Date: 20130325
  Transmission Date: 20140127
  Serious: Yes (Other)
  Sender: FDA-Public Use
  Company Number: JP-GLAXOSMITHKLINE-B0858635A

PATIENT
  Age: 84 None
  Sex: Female

DRUGS (16)
  1. REQUIP [Suspect]
     Indication: PARKINSON^S DISEASE
     Dosage: 8MG PER DAY
     Route: 048
     Dates: start: 20121226, end: 20130109
  2. REQUIP [Suspect]
     Indication: PARKINSON^S DISEASE
     Route: 048
     Dates: start: 20130110, end: 20130131
  3. CABASER [Concomitant]
     Dosage: 3MG PER DAY
     Route: 048
  4. PALOLACTIN [Concomitant]
     Route: 048
  5. TAKEPRON [Concomitant]
     Dosage: 15MG PER DAY
     Route: 048
     Dates: start: 20121214
  6. THYRADIN S [Concomitant]
     Dosage: 25MCG PER DAY
     Route: 048
     Dates: start: 20121214
  7. DROXIDOPA [Concomitant]
     Dosage: 200MG THREE TIMES PER DAY
     Route: 048
     Dates: start: 20121214
  8. DEPAS [Concomitant]
     Dosage: .5MG THREE TIMES PER DAY
     Route: 048
     Dates: start: 20121214
  9. MUCODYNE [Concomitant]
     Dosage: 250MG THREE TIMES PER DAY
     Route: 048
     Dates: start: 20121214
  10. KAMAG G [Concomitant]
     Dosage: 330MG THREE TIMES PER DAY
     Route: 048
     Dates: start: 20121214
  11. MENESIT [Concomitant]
     Dosage: 100MG THREE TIMES PER DAY
     Route: 048
     Dates: start: 20121214
  12. COMTAN [Concomitant]
     Dosage: 100MG THREE TIMES PER DAY
     Route: 048
     Dates: start: 20121214
  13. NAUZELIN [Concomitant]
     Dosage: 10MG THREE TIMES PER DAY
     Route: 048
     Dates: start: 20121214
  14. CEFZON [Concomitant]
     Dosage: 1G THREE TIMES PER DAY
     Route: 048
     Dates: start: 20121225
  15. CHINESE MEDICINE [Concomitant]
     Dosage: 2.5G TWICE PER DAY
     Route: 048
  16. CRAVIT [Concomitant]
     Dosage: 500MG PER DAY
     Route: 048

REACTIONS (6)
  - Delirium [Recovered/Resolved]
  - Sudden onset of sleep [Recovered/Resolved]
  - Depressed level of consciousness [Recovered/Resolved]
  - Hallucination [Recovered/Resolved]
  - Somnolence [Recovered/Resolved]
  - Negativism [Unknown]
